FAERS Safety Report 4467441-8 (Version None)
Quarter: 2004Q4

REPORT INFORMATION
  Report Type: 
  Country: None (occurrence: None)
  Receive Date: 20041006
  Receipt Date: 20040920
  Transmission Date: 20050328
  Serious: Yes (Life-Threatening, Hospitalization, Disabling, Other)
  Sender: FDA-Public Use
  Company Number: US-MERCK-0409USA01731

PATIENT
  Age: 78 Year
  Sex: Female
  Weight: 69 kg

DRUGS (5)
  1. AVAPRO [Concomitant]
     Indication: HYPERTENSION
     Route: 048
     Dates: start: 20000409
  2. VIOXX [Suspect]
     Indication: COSTOCHONDRITIS
     Route: 048
     Dates: start: 20040801, end: 20040816
  3. VIOXX [Suspect]
     Route: 048
     Dates: start: 20010611
  4. VIOXX [Suspect]
     Indication: OSTEOARTHRITIS
     Route: 048
     Dates: start: 20040801, end: 20040816
  5. VIOXX [Suspect]
     Route: 048
     Dates: start: 20010611

REACTIONS (6)
  - ACUTE MYOCARDIAL INFARCTION [None]
  - CATARACT [None]
  - HYPERCHOLESTEROLAEMIA [None]
  - OSTEOARTHRITIS [None]
  - SLEEP APNOEA SYNDROME [None]
  - VENTRICULAR EXTRASYSTOLES [None]
